FAERS Safety Report 11775351 (Version 7)
Quarter: 2017Q1

REPORT INFORMATION
  Report Type: Spontaneous
  Country: US (occurrence: US)
  Receive Date: 20151125
  Receipt Date: 20170307
  Transmission Date: 20170428
  Serious: Yes (Hospitalization)
  Sender: FDA-Public Use
  Company Number: US-ACTELION PHARMACEUTICALS US, INC.-A-NJ2015-116825

PATIENT
  Age: 63 Year
  Sex: Female
  Weight: 70.3 kg

DRUGS (2)
  1. VELETRI [Suspect]
     Active Substance: EPOPROSTENOL
     Dosage: 9 NG/KG, PER MIN
     Route: 042
     Dates: start: 20141219
  2. VELETRI [Suspect]
     Active Substance: EPOPROSTENOL
     Indication: PULMONARY HYPERTENSION
     Dosage: 11 NG/KG, PER MIN
     Route: 042

REACTIONS (22)
  - Fatigue [Unknown]
  - Catheter site infection [Unknown]
  - Dyspnoea [Unknown]
  - Pain in extremity [Unknown]
  - Intentional device misuse [Recovered/Resolved]
  - Dyspnoea exertional [Unknown]
  - Catheter site pruritus [Unknown]
  - Weight increased [Unknown]
  - Nausea [Unknown]
  - Family stress [Unknown]
  - Chest pain [Unknown]
  - Macular degeneration [Unknown]
  - Pain in jaw [Unknown]
  - Nervousness [Unknown]
  - Headache [Unknown]
  - Pneumonia [Unknown]
  - Drug dose omission [Unknown]
  - Cellulitis [Unknown]
  - Dizziness [Unknown]
  - Flushing [Unknown]
  - Diarrhoea [Unknown]
  - Palpitations [Unknown]

NARRATIVE: CASE EVENT DATE: 20150707
